FAERS Safety Report 6295577-8 (Version None)
Quarter: 2009Q3

REPORT INFORMATION
  Report Type: 
  Country: None (occurrence: None)
  Receive Date: 20090731
  Receipt Date: 20090713
  Transmission Date: 20100115
  Serious: Yes (Other)
  Sender: FDA-Public Use
  Company Number: None

PATIENT
  Age: 35 Year
  Sex: Male
  Weight: 72.5755 kg

DRUGS (3)
  1. ZICAM COLD REMEDY NASAL GEL [Suspect]
     Indication: NASOPHARYNGITIS
     Dates: start: 20090101
  2. ZICAM COLD REMEDY NASAL SWABS [Suspect]
  3. VITAMINS SUPPLEMENTS [Concomitant]

REACTIONS (2)
  - ANOSMIA [None]
  - CONVULSION [None]
